FAERS Safety Report 16261354 (Version 1)
Quarter: 2019Q2

REPORT INFORMATION
  Report Type: Spontaneous
  Country: DE (occurrence: DE)
  Receive Date: 20190501
  Receipt Date: 20190501
  Transmission Date: 20190711
  Serious: Yes (Other)
  Sender: FDA-Public Use
  Company Number: DE-INCYTE CORPORATION-2019IN004203

PATIENT

DRUGS (3)
  1. JAKAVI [Suspect]
     Active Substance: RUXOLITINIB
     Indication: STEM CELL TRANSPLANT
     Route: 048
  2. THIOTEPA. [Concomitant]
     Active Substance: THIOTEPA
     Indication: BONE MARROW CONDITIONING REGIMEN
     Route: 065
  3. FLUDARABINE [Concomitant]
     Active Substance: FLUDARABINE PHOSPHATE
     Indication: BONE MARROW CONDITIONING REGIMEN
     Route: 065

REACTIONS (7)
  - Graft versus host disease in eye [Recovering/Resolving]
  - Chronic graft versus host disease [Recovering/Resolving]
  - Skin ulcer [Unknown]
  - Chronic graft versus host disease in skin [Recovering/Resolving]
  - Disease recurrence [Unknown]
  - Chronic graft versus host disease in liver [Recovering/Resolving]
  - Product use in unapproved indication [Unknown]
